FAERS Safety Report 6981274-X (Version None)
Quarter: 2010Q3

REPORT INFORMATION
  Report Type: 
  Country: None (occurrence: None)
  Receive Date: 20100914
  Receipt Date: 20100903
  Transmission Date: 20110219
  Serious: Yes (Other)
  Sender: FDA-Public Use
  Company Number: US-AMGEN-KDC436172

PATIENT

DRUGS (3)
  1. DENOSUMAB - BLINDED [Suspect]
     Indication: PROSTATE CANCER
  2. FINASTERIDE [Concomitant]
  3. CASODEX (ASTRA ZENECA) [Concomitant]

REACTIONS (1)
  - OSTEONECROSIS OF JAW [None]
